FAERS Safety Report 4698254-X (Version None)
Quarter: 2005Q2

REPORT INFORMATION
  Report Type: 
  Country: None (occurrence: None)
  Receive Date: 20050623
  Receipt Date: 20050310
  Transmission Date: 20051028
  Serious: Yes (Other)
  Sender: FDA-Public Use
  Company Number: PHEH2005US03043

PATIENT
  Age: 73 Year
  Sex: Female
  Weight: 53 kg

DRUGS (10)
  1. ZOMETA [Suspect]
     Indication: METASTASES TO BONE
     Dosage: 4 MG QMO
     Dates: start: 20020513, end: 20050112
  2. SYNTHROID [Concomitant]
  3. CELEBREX [Concomitant]
  4. AMIODARONE [Concomitant]
  5. NEXIUM [Concomitant]
  6. ARIMIDEX [Concomitant]
     Dates: start: 20020101, end: 20030901
  7. FASLODEX [Concomitant]
     Dates: start: 20030901, end: 20040701
  8. AROMASIN [Concomitant]
     Dates: start: 20040701, end: 20041201
  9. MULTIVITAMIN ^LAPPE^ [Concomitant]
  10. ASCORBIC ACID [Concomitant]

REACTIONS (15)
  - ALVEOLOPLASTY [None]
  - BONE DEBRIDEMENT [None]
  - GENERAL ANAESTHESIA [None]
  - GINGIVAL SWELLING [None]
  - GINGIVITIS [None]
  - IMPAIRED HEALING [None]
  - INFLAMMATION [None]
  - ORAL PAIN [None]
  - OSTEONECROSIS [None]
  - PRIMARY SEQUESTRUM [None]
  - SEQUESTRECTOMY [None]
  - TOOTH DISORDER [None]
  - TOOTH EXTRACTION [None]
  - TOOTH FRACTURE [None]
  - TOOTH INFECTION [None]
